FAERS Safety Report 21314190 (Version 4)
Quarter: 2023Q2

REPORT INFORMATION
  Report Type: Report from Study
  Country: US (occurrence: US)
  Receive Date: 20220909
  Receipt Date: 20230406
  Transmission Date: 20230721
  Serious: No
  Sender: FDA-Public Use
  Company Number: US-NOVARTISTESTPH-NVSC2022US203450

PATIENT
  Sex: Female

DRUGS (1)
  1. KESIMPTA [Suspect]
     Active Substance: OFATUMUMAB
     Indication: Product used for unknown indication
     Dosage: UNK
     Route: 058

REACTIONS (10)
  - Lymph node pain [Unknown]
  - Vomiting [Unknown]
  - Anaemia [Unknown]
  - Fatigue [Unknown]
  - Contusion [Unknown]
  - Skin fragility [Unknown]
  - Lymphadenopathy [Unknown]
  - Dysmenorrhoea [Unknown]
  - Headache [Unknown]
  - Nausea [Unknown]
